FAERS Safety Report 6047101-2 (Version None)
Quarter: 2009Q1

REPORT INFORMATION
  Report Type: 
  Country: None (occurrence: None)
  Receive Date: 20090122
  Receipt Date: 20090115
  Transmission Date: 20090719
  Serious: Yes (Hospitalization)
  Sender: FDA-Public Use
  Company Number: US-ABBOTT-09P-163-0497897-00

PATIENT
  Sex: Female
  Weight: 47.67 kg

DRUGS (1)
  1. HUMIRA [Suspect]
     Indication: RHEUMATOID ARTHRITIS
     Route: 058
     Dates: start: 20081023

REACTIONS (9)
  - ASTHENIA [None]
  - BRONCHITIS [None]
  - FATIGUE [None]
  - FEELING ABNORMAL [None]
  - HYPOPHAGIA [None]
  - NASAL DRYNESS [None]
  - RASH MACULAR [None]
  - SINUSITIS [None]
  - SWELLING [None]
